FAERS Safety Report 8864262 (Version 1)
Quarter: 2012Q4

REPORT INFORMATION
  Report Type: 
  Country: US (occurrence: US)
  Receive Date: 20121024
  Receipt Date: 20121024
  Transmission Date: 20130627
  Serious: No
  Sender: FDA-Public Use
  Company Number: US-AMGEN-USASP2011066581

PATIENT
  Age: 55 Year
  Sex: Female
  Weight: 49.89 kg

DRUGS (1)
  1. ENBREL [Suspect]
     Indication: PSORIATIC ARTHROPATHY
     Dosage: 50 mg, qwk
     Dates: start: 20110714

REACTIONS (2)
  - Neuropathy peripheral [Unknown]
  - Paraesthesia [Unknown]
